FAERS Safety Report 22143781 (Version 2)
Quarter: 2023Q2

REPORT INFORMATION
  Report Type: Spontaneous
  Country: BR (occurrence: BR)
  Receive Date: 20230327
  Receipt Date: 20230406
  Transmission Date: 20230722
  Serious: Yes (Hospitalization, Other)
  Sender: FDA-Public Use
  Company Number: BR-BoehringerIngelheim-2023-BI-226133

PATIENT
  Age: 74 Year
  Sex: Female
  Weight: 63 kg

DRUGS (5)
  1. MICARDIS [Suspect]
     Active Substance: TELMISARTAN
     Indication: Hypertension
     Route: 048
     Dates: start: 20180218
  2. MICARDIS [Suspect]
     Active Substance: TELMISARTAN
     Route: 048
  3. ELIQUIS [Concomitant]
     Active Substance: APIXABAN
     Indication: Anticoagulant therapy
     Route: 048
  4. INDAPAMIDE [Concomitant]
     Active Substance: INDAPAMIDE
     Indication: Product used for unknown indication
     Dosage: AT 7AM
     Route: 048
  5. METOPROLOL SUCCINATE [Concomitant]
     Active Substance: METOPROLOL SUCCINATE
     Indication: Arrhythmia
     Dosage: AT 2 PM
     Route: 048

REACTIONS (5)
  - Cerebrovascular accident [Recovered/Resolved with Sequelae]
  - Blood pressure decreased [Recovered/Resolved]
  - Product physical issue [Unknown]
  - Product prescribing error [Unknown]
  - Dysphonia [Not Recovered/Not Resolved]

NARRATIVE: CASE EVENT DATE: 20220207
